FAERS Safety Report 5939159-3 (Version None)
Quarter: 2008Q4

REPORT INFORMATION
  Report Type: 
  Country: None (occurrence: None)
  Receive Date: 20081103
  Receipt Date: 20081022
  Transmission Date: 20090506
  Serious: Yes (Death, Hospitalization)
  Sender: FDA-Public Use
  Company Number: US-PFIZER INC-2008089126

PATIENT
  Sex: Male

DRUGS (4)
  1. PROCARDIA [Suspect]
     Dates: end: 20080828
  2. ADVAIR DISKUS 100/50 [Suspect]
     Indication: CHRONIC OBSTRUCTIVE PULMONARY DISEASE
     Route: 055
     Dates: start: 20080401, end: 20080828
  3. LANTHANUM CARBONATE [Concomitant]
  4. PROTONIX [Concomitant]

REACTIONS (1)
  - DEATH [None]
